FAERS Safety Report 8746264 (Version 4)
Quarter: 2012Q4

REPORT INFORMATION
  Report Type: 
  Country: JP (occurrence: JP)
  Receive Date: 20120827
  Receipt Date: 20121016
  Transmission Date: 20130627
  Serious: Yes (Death, Other)
  Sender: FDA-Public Use
  Company Number: JP-MILLENNIUM PHARMACEUTICALS, INC.-2012-05922

PATIENT

DRUGS (22)
  1. VELCADE [Suspect]
     Indication: PRODUCT USED FOR UNKNOWN INDICATION
     Dosage: 1.3 mg/m2, UNK
     Route: 042
     Dates: start: 20120612
  2. VELCADE [Suspect]
     Dosage: 1 mg/m2, UNK
     Route: 042
     Dates: start: 20120806, end: 20120809
  3. THALIDOMIDE [Suspect]
     Indication: PRODUCT USED FOR UNKNOWN INDICATION
     Dosage: 50 mg, UNK
     Route: 048
     Dates: start: 20120806, end: 20120809
  4. DEXAMETHASONE [Suspect]
     Indication: PRODUCT USED FOR UNKNOWN INDICATION
     Dosage: 20 mg, UNK
     Route: 065
     Dates: start: 20120612, end: 20120809
  5. NICARDIPINE [Concomitant]
     Indication: HYPERTENSIVE ENCEPHALOPATHY
     Dosage: 10 mg, UNK
     Route: 042
     Dates: start: 20120705, end: 20120717
  6. ADALAT [Concomitant]
     Indication: HYPERTENSIVE ENCEPHALOPATHY
     Dosage: 10 mg, UNK
     Route: 065
     Dates: start: 20120718, end: 20120811
  7. OLMETEC [Concomitant]
     Indication: HYPERTENSIVE ENCEPHALOPATHY
     Dosage: 5 mg, UNK
     Dates: start: 20120721, end: 20120811
  8. TAZOBACTAM SODIUM [Concomitant]
     Route: 042
  9. TEICOPLANIN [Concomitant]
     Route: 042
  10. VFEND [Concomitant]
     Route: 042
  11. URINORM [Concomitant]
  12. HOKUNALIN [Concomitant]
     Route: 062
  13. DEPAKENE                           /00228502/ [Concomitant]
     Route: 048
  14. NIFEDIPINE [Concomitant]
  15. OLMETEC [Concomitant]
  16. FEBUXOSTAT [Concomitant]
  17. TAKEPRON [Concomitant]
  18. BAKTAR [Concomitant]
  19. CLOSTRIDIUM BUTYRICUM [Concomitant]
  20. METHYCOBAL                         /00324901/ [Concomitant]
  21. ZYPREXA [Concomitant]
  22. SEROQUEL [Concomitant]

REACTIONS (4)
  - Hypotension [Fatal]
  - Hypertension [Recovering/Resolving]
  - Hypertensive encephalopathy [Recovering/Resolving]
  - Sepsis [Not Recovered/Not Resolved]
